FAERS Safety Report 9872761 (Version 2)
Quarter: 2014Q1

REPORT INFORMATION
  Report Type: Spontaneous
  Country: US (occurrence: US)
  Receive Date: 20140206
  Receipt Date: 20140206
  Transmission Date: 20141002
  Serious: No
  Sender: FDA-Public Use
  Company Number: US-ACORDA-ACO_100524_2013

PATIENT
  Sex: Female

DRUGS (3)
  1. AMPYRA [Suspect]
     Indication: GAIT DISTURBANCE
     Dosage: 10 MG, BID
     Route: 048
     Dates: start: 2010
  2. HYOSCYAMINE [Suspect]
     Indication: URINARY TRACT INFECTION
     Dosage: 0.125 MG, PRN
     Route: 060
  3. VESICARE [Concomitant]
     Indication: URINARY TRACT INFECTION
     Dosage: UNK
     Route: 048

REACTIONS (5)
  - Fall [Not Recovered/Not Resolved]
  - Micturition urgency [Not Recovered/Not Resolved]
  - Therapeutic response unexpected [Unknown]
  - Urinary tract infection [Not Recovered/Not Resolved]
  - Drug ineffective [Unknown]
